FAERS Safety Report 10251970 (Version 1)
Quarter: 2014Q2

REPORT INFORMATION
  Report Type: Report from Study
  Country: JP (occurrence: None)
  Receive Date: 20140619
  Receipt Date: 20140619
  Transmission Date: 20141212
  Serious: Yes (Life-Threatening, Hospitalization, Disabling)
  Sender: FDA-Public Use
  Company Number: 2010JP002177

PATIENT
  Age: 52 Year
  Sex: Female
  Weight: 50 kg

DRUGS (22)
  1. PROGRAF (TACROLIMUS) CAPSULE [Suspect]
     Indication: LUPUS NEPHRITIS
     Route: 048
     Dates: start: 20090218, end: 20120516
  2. MEDROL (METHYLPREDNISOLONE) [Concomitant]
  3. BREDININ (MIZORIBINE) [Concomitant]
  4. METHYLPREDNISOLONE SODIUM SUCCINATE (METHYLPREDNISOLONE SODIUM SUCCINATE) [Concomitant]
  5. PREDNISOLONE [Concomitant]
  6. PREDNISOLONE SODIUM SUCCINATE [Concomitant]
  7. ZYLORIC (ALLOPURINOL) [Concomitant]
  8. FLUITRAN (TRICHLORMETHIAZIDE) [Concomitant]
  9. ALFAROL (ALFACALCIDOL) [Concomitant]
  10. BAYASPIRIN (ACETYLSALICYLIC ACID) [Concomitant]
  11. BLOPRESS (CANDESARTAN CILEXETIL) [Concomitant]
  12. ATELEC (CILNIDIPINE) [Concomitant]
  13. NORVASC (AMLODIPINE BESILATE) [Concomitant]
  14. ARGAMATE (CALCIUM POLYSTYRENE SULFONATE) [Concomitant]
  15. JUSO (SODIUM BICARBONATE) [Concomitant]
  16. GASTER (FAMOTIDINE) ORODISPERSIBLE TABLET [Concomitant]
  17. PROTECADIN (LAFUTIDINE) [Concomitant]
  18. SELBEX (TEPRENONE) [Concomitant]
  19. FUROSEMIDE [Concomitant]
  20. VASOLAN /00014302/ (VERAPAMIL HYDROCHLORIDE) [Concomitant]
  21. ASPENON (APRINDINE HYDROCHLORIDE) [Concomitant]
  22. WARFARIN [Concomitant]

REACTIONS (8)
  - Cardiac valve disease [None]
  - Neuropsychiatric lupus [None]
  - Atrial fibrillation [None]
  - Renal disorder [None]
  - Hypertension [None]
  - Platelet count decreased [None]
  - Mitral valve incompetence [None]
  - Aortic valve incompetence [None]
